FAERS Safety Report 15538469 (Version 3)
Quarter: 2018Q4

REPORT INFORMATION
  Report Type: Report from Study
  Country: DE (occurrence: DE)
  Receive Date: 20181022
  Receipt Date: 20181226
  Transmission Date: 20190205
  Serious: Yes (Hospitalization)
  Sender: FDA-Public Use
  Company Number: DE-PFIZER INC-2018425469

PATIENT
  Age: 36 Year
  Sex: Female
  Weight: 66 kg

DRUGS (11)
  1. LEUCOVORIN. [Suspect]
     Active Substance: LEUCOVORIN
     Indication: COLORECTAL CANCER METASTATIC
     Dosage: 686.4 MG, UNK
     Route: 042
     Dates: start: 20180509, end: 20181010
  2. AVELUMAB [Suspect]
     Active Substance: AVELUMAB
     Indication: COLORECTAL CANCER METASTATIC
     Dosage: 650 MG, ONCE EVERY TWO WEEKS
     Route: 042
     Dates: start: 20180523
  3. PALONOSETRON. [Concomitant]
     Active Substance: PALONOSETRON HYDROCHLORIDE
     Indication: PREMEDICATION
     Dosage: 250 UG, CYCLIC (EVERY TWO WEEKS)
     Dates: start: 20180509
  4. OXALIPLATIN. [Suspect]
     Active Substance: OXALIPLATIN
     Dosage: 145.86 MG, UNK
     Route: 042
     Dates: start: 20181107
  5. LEUCOVORIN. [Suspect]
     Active Substance: LEUCOVORIN
     Dosage: 686.4 MG, UNK
     Route: 042
     Dates: start: 20181107
  6. EMEND [Concomitant]
     Active Substance: APREPITANT
     Indication: PREMEDICATION
     Dosage: 150 MG, CYCLIC (EVERY TWO WEEKS)
     Dates: start: 20180523
  7. FLUOROURACIL. [Suspect]
     Active Substance: FLUOROURACIL
     Indication: COLORECTAL CANCER METASTATIC
     Dosage: 4726.2 MG, UNK
     Route: 042
     Dates: start: 20180509, end: 20180829
  8. PARACETAMOL [Concomitant]
     Active Substance: ACETAMINOPHEN
     Indication: PREMEDICATION
     Dosage: 1 G, WEEKLY
     Dates: start: 20180516
  9. DIMETINDENE [Concomitant]
     Active Substance: DIMETHINDENE
     Indication: PREMEDICATION
     Dosage: 4 MG, WEEKLY
     Dates: start: 20180509
  10. CETUXIMAB. [Suspect]
     Active Substance: CETUXIMAB
     Indication: COLORECTAL CANCER METASTATIC
     Dosage: 429 MG, WEEKLY
     Route: 042
     Dates: start: 20180509
  11. OXALIPLATIN. [Suspect]
     Active Substance: OXALIPLATIN
     Indication: COLORECTAL CANCER METASTATIC
     Dosage: 145.86 MG, UNK
     Route: 042
     Dates: start: 20180509, end: 20181010

REACTIONS (1)
  - Infusion related reaction [Recovered/Resolved]

NARRATIVE: CASE EVENT DATE: 20181010
